FAERS Safety Report 24990299 (Version 1)
Quarter: 2025Q1

REPORT INFORMATION
  Report Type: Spontaneous
  Country: US (occurrence: None)
  Receive Date: 20250219
  Receipt Date: 20250219
  Transmission Date: 20250409
  Serious: Yes (Other)
  Sender: FDA-CTU
  Company Number: None

PATIENT
  Age: 56 Year
  Sex: Female

DRUGS (1)
  1. NEMOLIZUMAB-ILTO [Suspect]
     Active Substance: NEMOLIZUMAB-ILTO
     Indication: Dermatitis atopic
     Dosage: OTHER FREQUENCY : MONTHLY INJECTION;?
     Route: 058
     Dates: start: 20250111, end: 20250208

REACTIONS (1)
  - Eczema [None]

NARRATIVE: CASE EVENT DATE: 20250208
